FAERS Safety Report 5663227-7 (Version None)
Quarter: 2008Q1

REPORT INFORMATION
  Report Type: 
  Country: None (occurrence: None)
  Receive Date: 20080313
  Receipt Date: 20080222
  Transmission Date: 20080703
  Serious: Yes (Other)
  Sender: FDA-Public Use
  Company Number: US-PFIZER INC-2008019209

PATIENT
  Sex: Female
  Weight: 168 kg

DRUGS (6)
  1. CHANTIX [Suspect]
     Indication: SMOKING CESSATION THERAPY
  2. SPIRONOLACTONE [Concomitant]
  3. ALL OTHER THERAPEUTIC PRODUCTS [Concomitant]
     Indication: SLEEP DISORDER
  4. THYROID HORMONES [Concomitant]
     Indication: THYROID DISORDER
  5. CALCIUM [Concomitant]
  6. ANTIBIOTICS [Concomitant]
     Indication: SKIN ULCER

REACTIONS (7)
  - ABDOMINAL PAIN UPPER [None]
  - BONE PAIN [None]
  - HEADACHE [None]
  - NAUSEA [None]
  - OSTEOPOROSIS [None]
  - RESORPTION BONE INCREASED [None]
  - WEIGHT INCREASED [None]
